FAERS Safety Report 5772525-8 (Version None)
Quarter: 2008Q2

REPORT INFORMATION
  Report Type: 
  Country: None (occurrence: None)
  Receive Date: 20080613
  Receipt Date: 20080605
  Transmission Date: 20081010
  Serious: Yes (Other)
  Sender: FDA-Public Use
  Company Number: GB-AMGEN-US285613

PATIENT
  Sex: Female

DRUGS (3)
  1. ENBREL [Suspect]
     Indication: RHEUMATOID ARTHRITIS
     Dosage: 50MG FREQUENCY UNKNOWN
     Route: 058
     Dates: start: 20080401, end: 20080501
  2. HUMIRA [Concomitant]
     Dosage: 40MG FREQUENCY UNKNOWN
     Route: 058
     Dates: start: 20071201, end: 20080401
  3. ACETAMINOPHEN W/ CODEINE [Concomitant]
     Dosage: UNKNOWN
     Route: 048

REACTIONS (1)
  - SKIN REACTION [None]
